FAERS Safety Report 20016812 (Version 1)
Quarter: 2021Q4

REPORT INFORMATION
  Report Type: Spontaneous
  Country: US (occurrence: None)
  Receive Date: 20211105
  Receipt Date: 20211105
  Transmission Date: 20220303
  Serious: No
  Sender: FDA-Public Use
  Company Number: None

PATIENT
  Age: 66 Year
  Sex: Male
  Weight: 93.15 kg

DRUGS (1)
  1. BRIMONIDINE TARTRATE [Suspect]
     Active Substance: BRIMONIDINE TARTRATE
     Indication: Glaucoma
     Dosage: FREQUENCY : EVERY 8 HOURS;?
     Route: 047
     Dates: start: 20210101

REACTIONS (5)
  - Eye pain [None]
  - Ocular hyperaemia [None]
  - Erythema of eyelid [None]
  - Swelling of eyelid [None]
  - Eye swelling [None]

NARRATIVE: CASE EVENT DATE: 20211023
